FAERS Safety Report 8214025-1 (Version None)
Quarter: 2012Q1

REPORT INFORMATION
  Report Type: 
  Country: None (occurrence: None)
  Receive Date: 20120316
  Receipt Date: 20120312
  Transmission Date: 20120608
  Serious: No
  Sender: FDA-Public Use
  Company Number: US-PFIZER INC-2012065917

PATIENT
  Sex: Male
  Weight: 88.435 kg

DRUGS (2)
  1. FLECTOR [Suspect]
     Indication: BACK PAIN
     Dosage: UNK,EVERY TWELVE HOURS
     Dates: start: 20120307
  2. SITAGLIPTIN AND METFORMIN HYDROCHLORIDE [Concomitant]
     Indication: DIABETES MELLITUS
     Dosage: 50/500 MG, 2X/DAY
     Route: 048

REACTIONS (1)
  - MALABSORPTION [None]
